FAERS Safety Report 15197144 (Version 3)
Quarter: 2018Q3

REPORT INFORMATION
  Report Type: Spontaneous
  Country: DE (occurrence: DE)
  Receive Date: 20180725
  Receipt Date: 20180725
  Transmission Date: 20181010
  Serious: Yes (Life-Threatening, Hospitalization, Other)
  Sender: FDA-Public Use
  Company Number: PHHY2018DE050305

PATIENT
  Sex: Male

DRUGS (30)
  1. RITUXIMAB. [Suspect]
     Active Substance: RITUXIMAB
     Dosage: 780 MG, QD
     Route: 042
     Dates: start: 20150824
  2. DOXORUBICIN [Suspect]
     Active Substance: DOXORUBICIN
     Indication: B-CELL LYMPHOMA
     Dosage: 1 OT, QD (LAST DOSE PRIOR TO SAE)
     Route: 042
     Dates: start: 20150520
  3. PEGFILGRASTIM [Suspect]
     Active Substance: PEGFILGRASTIM
     Indication: B-CELL LYMPHOMA
     Dosage: 6 MG, QD
     Route: 058
     Dates: start: 20150810
  4. URAPIDIL [Concomitant]
     Active Substance: URAPIDIL
     Indication: HYPERTENSION
     Dosage: 180 MG, QD (60 MG, TID )
     Route: 048
  5. METOPROLOL SUCCINATE. [Concomitant]
     Active Substance: METOPROLOL SUCCINATE
     Indication: HYPERTENSION
     Dosage: 95 MG, QD (47.5 MG, BID)
     Route: 048
  6. POLYETHYLENE GLYCOL [Concomitant]
     Active Substance: POLYETHYLENE GLYCOLS
     Indication: PRODUCT USED FOR UNKNOWN INDICATION
     Dosage: 13.13 G, QD
     Route: 048
  7. RAMIPRIL. [Concomitant]
     Active Substance: RAMIPRIL
     Indication: HYPERTENSION
     Dosage: 10 MG, QD (5 MG, BID )
     Route: 048
  8. RITUXIMAB. [Suspect]
     Active Substance: RITUXIMAB
     Dosage: 820 MG, QD (LAST DOSE PRIOR TO SAE)
     Route: 042
     Dates: start: 20150519
  9. CYCLOPHOSPHAMIDE. [Suspect]
     Active Substance: CYCLOPHOSPHAMIDE
     Dosage: 1560 MG, QD
     Route: 042
     Dates: start: 20150808
  10. CINNARIZINE W/DIMENHYDRINATE [Concomitant]
     Indication: DIZZINESS
     Dosage: 40 MG, QD (20 MG, BID)
     Route: 048
  11. AMLODIPINE [Concomitant]
     Active Substance: AMLODIPINE BESYLATE
     Indication: HYPERTENSION
     Dosage: 5 MG, QD
     Route: 048
  12. METHOTREXATE. [Suspect]
     Active Substance: METHOTREXATE
     Indication: B-CELL LYMPHOMA
     Dosage: 1550 MG, QD
     Route: 042
     Dates: start: 20150429
  13. PANTOPRAZOLE SODIUM. [Concomitant]
     Active Substance: PANTOPRAZOLE SODIUM
     Indication: PROPHYLAXIS AGAINST GASTROINTESTINAL ULCER
     Dosage: 40 MG, QD
     Route: 048
  14. BISOPROLOL [Concomitant]
     Active Substance: BISOPROLOL
     Indication: HYPERTENSION
     Dosage: 10 MG, QD
     Route: 048
  15. PREDNISOLONE. [Suspect]
     Active Substance: PREDNISOLONE
     Dosage: 1550 MG, UNK
     Route: 048
     Dates: start: 20150814
  16. VINCRISTINE [Suspect]
     Active Substance: VINCRISTINE
     Dosage: 2 MG, QD
     Route: 042
     Dates: start: 20150808
  17. CHOLECALCIFEROL [Concomitant]
     Active Substance: CHOLECALCIFEROL
     Indication: VITAMIN D DEFICIENCY
     Dosage: 20000 IU, UNK
     Route: 048
  18. ALLOPURINOL. [Concomitant]
     Active Substance: ALLOPURINOL
     Indication: HYPERURICAEMIA
     Dosage: 50 MG, QD
     Route: 048
  19. RITUXIMAB. [Suspect]
     Active Substance: RITUXIMAB
     Indication: B-CELL LYMPHOMA
     Dosage: 820 MG, QD
     Route: 042
     Dates: start: 20150428
  20. PREDNISOLONE. [Suspect]
     Active Substance: PREDNISOLONE
     Indication: B-CELL LYMPHOMA
     Dosage: UNK (LAST DOSE PRIOR TO SAE)
     Route: 048
     Dates: start: 20150519, end: 20150526
  21. CYCLOPHOSPHAMIDE. [Suspect]
     Active Substance: CYCLOPHOSPHAMIDE
     Indication: B-CELL LYMPHOMA
     Dosage: 1 OT, QD (LAST DOSE PRIOR TO SAE)
     Route: 042
     Dates: start: 20150520
  22. TORASEMIDE [Concomitant]
     Active Substance: TORSEMIDE
     Indication: HYPERTENSION
     Dosage: 10 MG, QD
     Route: 048
  23. AMITRIPTYLINE [Concomitant]
     Active Substance: AMITRIPTYLINE
     Indication: DEPRESSION
     Dosage: 25 MG, QD
     Route: 048
  24. MOXONIDIN [Concomitant]
     Active Substance: MOXONIDINE
     Indication: HYPERTENSION
     Dosage: 92 MG, QD
     Route: 048
  25. DOXORUBICIN [Suspect]
     Active Substance: DOXORUBICIN
     Dosage: 104 MG, QD
     Route: 042
     Dates: start: 20150808
  26. HYDROMORPHONE [Concomitant]
     Active Substance: HYDROMORPHONE
     Indication: ANALGESIC THERAPY
     Dosage: 8 MG, QD (4 MG, BID)
     Route: 048
  27. MACROGOL [Concomitant]
     Active Substance: POLYETHYLENE GLYCOLS
     Indication: CONSTIPATION PROPHYLAXIS
     Dosage: 13.13 G, QD
     Route: 048
  28. PREDNISOLONE. [Suspect]
     Active Substance: PREDNISOLONE
     Dosage: 1550 MG, UNK
     Route: 048
     Dates: start: 20150807
  29. VINCRISTINE [Suspect]
     Active Substance: VINCRISTINE
     Indication: B-CELL LYMPHOMA
     Dosage: 1 OT, QD (LAST DOSE PRIOR TO SAE)
     Route: 042
     Dates: start: 20150520
  30. TELMISARTAN. [Concomitant]
     Active Substance: TELMISARTAN
     Indication: HYPERTENSION
     Dosage: 40 MG, UNK
     Route: 065

REACTIONS (4)
  - Staphylococcal sepsis [Recovered/Resolved]
  - Chylothorax [Recovered/Resolved]
  - Delirium [Recovered/Resolved]
  - Diarrhoea [Recovered/Resolved]

NARRATIVE: CASE EVENT DATE: 20150505
